FAERS Safety Report 9283975 (Version 2)
Quarter: 2013Q2

REPORT INFORMATION
  Report Type: Spontaneous
  Country: US (occurrence: None)
  Receive Date: 20130503
  Receipt Date: 20130607
  Transmission Date: 20140414
  Serious: Yes (Hospitalization)
  Sender: FDA-Public Use
  Company Number: 2013US001540

PATIENT
  Age: 75 Year
  Sex: Male
  Weight: 73 kg

DRUGS (11)
  1. ICLUSIG [Suspect]
     Indication: CHRONIC MYELOID LEUKAEMIA
     Route: 048
     Dates: start: 20130116
  2. METOPROLOL SUCCINATE ER [Concomitant]
  3. ATORVASTATIN (ATORVASTATIN) [Concomitant]
  4. MORPHINE SULFATE (MORPHINE SULFATE) [Concomitant]
  5. HYOSCYAMINE (HYOSCYAMINE) [Concomitant]
  6. LISINOPRIL (LISINOPRIL) [Concomitant]
  7. VESICARE (SOLIFENACIN SUCCINATE) [Concomitant]
  8. AZO (AZITHROMYCIN) [Concomitant]
  9. LUPRON (LEUPRORELIN ACETATE) [Concomitant]
  10. IRON (IRON) [Concomitant]
  11. BLOOD TRANSFUSION, AUXILIARY PRODUCTS [Concomitant]

REACTIONS (22)
  - Haematuria [None]
  - Gastric haemorrhage [None]
  - Urosepsis [None]
  - Muscle atrophy [None]
  - Facial wasting [None]
  - Mass [None]
  - Headache [None]
  - Fatigue [None]
  - Dizziness postural [None]
  - Rectal haemorrhage [None]
  - Arthralgia [None]
  - Oedema peripheral [None]
  - Abdominal pain [None]
  - Cystitis radiation [None]
  - Blood pressure diastolic decreased [None]
  - Hypochromic anaemia [None]
  - Klebsiella infection [None]
  - Pathogen resistance [None]
  - Ureteric obstruction [None]
  - Metastases to testicle [None]
  - Prostate cancer [None]
  - Malignant neoplasm progression [None]
